FAERS Safety Report 4721341-4 (Version None)
Quarter: 2005Q3

REPORT INFORMATION
  Report Type: 
  Country: None (occurrence: None)
  Receive Date: 20050721
  Receipt Date: 20040701
  Transmission Date: 20060218
  Serious: No
  Sender: FDA-Public Use
  Company Number: US-BRISTOL-MYERS SQUIBB COMPANY-12630992

PATIENT
  Age: 91 Year
  Sex: Female

DRUGS (1)
  1. COUMADIN [Suspect]
     Indication: THROMBOSIS
     Dosage: STARTED ABOUT 1 YEAR AGO;27-JUN-04:STOPPED X 2 DAYS, THEN RESTARTED ON 29-JUN-2004. CE
     Route: 048

REACTIONS (1)
  - PARANOIA [None]
